FAERS Safety Report 9525560 (Version 1)
Quarter: 2013Q1

REPORT INFORMATION
  Report Type: Spontaneous
  Country: US (occurrence: None)
  Receive Date: 20130305
  Receipt Date: 20130305
  Transmission Date: 20140127
  Serious: Yes (Other)
  Sender: FDA-Public Use
  Company Number: 163-21880-12023148

PATIENT
  Age: 76 Year
  Sex: Male

DRUGS (13)
  1. REVLIMID [Suspect]
     Indication: PLASMA CELL MYELOMA
     Dosage: 25 MG, M, W, F X 21 DAYS / 28 DAY CYCLE, PO
     Dates: start: 200811
  2. ASPIRIN (ACETYLSALICYLIC ACID) [Concomitant]
  3. CENTRUM [Concomitant]
  4. CALAN (VERAPAMIL HYDROCHLORIDE) [Concomitant]
  5. FUROSEMIDE [Concomitant]
  6. HYDROCHLOROTHIAZIDE [Concomitant]
  7. SYNTHROID (LEVOTHYROXINE SODIUM) [Concomitant]
  8. BISACODYL [Concomitant]
  9. FENTANYL [Concomitant]
  10. PERCOCET (OXYCOCET) [Concomitant]
  11. AMMONIUM LACTATE [Concomitant]
  12. POTASSIUM CHLORIDE [Concomitant]
  13. VITAMIN B12 (CYANOCOBALAMIN) [Concomitant]

REACTIONS (1)
  - Pancytopenia [None]
